FAERS Safety Report 5341708-3 (Version None)
Quarter: 2007Q2

REPORT INFORMATION
  Report Type: 
  Country: None (occurrence: None)
  Receive Date: 20070601
  Receipt Date: 20070521
  Transmission Date: 20071010
  Serious: Yes (Death, Other)
  Sender: FDA-Public Use
  Company Number: GB-JNJFOC-20070505293

PATIENT
  Age: 69 Year
  Sex: Female
  Weight: 48 kg

DRUGS (5)
  1. REMICADE [Suspect]
     Indication: RHEUMATOID ARTHRITIS
     Route: 042
  2. ADCAL-D3 [Concomitant]
  3. ALENDRONATE SODIUM [Concomitant]
  4. FOLIC ACID [Concomitant]
  5. METHOTREXATE SODIUM [Concomitant]

REACTIONS (1)
  - LUNG NEOPLASM MALIGNANT [None]
